FAERS Safety Report 14301198 (Version 7)
Quarter: 2018Q4

REPORT INFORMATION
  Report Type: Spontaneous
  Country: GB (occurrence: GB)
  Receive Date: 20171219
  Receipt Date: 20181017
  Transmission Date: 20190204
  Serious: Yes (Life-Threatening, Hospitalization, Other)
  Sender: FDA-Public Use
  Company Number: GB-AUROBINDO-AUR-APL-2017-45902

PATIENT
  Age: 70 Year
  Sex: Female

DRUGS (14)
  1. OXYCODONE [Concomitant]
     Active Substance: OXYCODONE
     Indication: NAUSEA
  2. FENTANYL. [Suspect]
     Active Substance: FENTANYL
     Indication: BACK PAIN
     Dosage: 20100 ?G, EVERY HOUR
     Route: 062
  3. FENTANYL. [Suspect]
     Active Substance: FENTANYL
     Dosage: 10 PATCHES OF 100 MICROGRM, ONCE (1) ; IN TOTAL
     Route: 062
     Dates: start: 201407, end: 201407
  4. MIRTAZAPINE FILM-COATED TABLET [Suspect]
     Active Substance: MIRTAZAPINE
     Dosage: 45 MILLIGRAM, TWO TIMES A DAY
     Route: 065
     Dates: start: 201407, end: 201407
  5. FENTANYL. [Suspect]
     Active Substance: FENTANYL
     Indication: ANALGESIC THERAPY
     Dosage: 150 MCG, 1/HR
     Route: 062
     Dates: start: 201012
  6. FENTANYL. [Suspect]
     Active Substance: FENTANYL
     Dosage: 150 MCG, 1/HR
     Route: 062
     Dates: start: 20101201
  7. TRAMADOL. [Suspect]
     Active Substance: TRAMADOL
     Indication: PRODUCT USED FOR UNKNOWN INDICATION
     Dosage: UNK
     Route: 065
  8. FENTANYL. [Suspect]
     Active Substance: FENTANYL
     Dosage: 100 ?G, TOTAL
     Dates: start: 201407
  9. MIRTAZAPINE FILM-COATED TABLET [Suspect]
     Active Substance: MIRTAZAPINE
     Indication: SUICIDE ATTEMPT
     Dosage: 15 MILLIGRAM, ONCE A DAY
     Route: 065
     Dates: start: 201405
  10. ORAMORPH [Suspect]
     Active Substance: MORPHINE SULFATE
     Indication: PRODUCT USED FOR UNKNOWN INDICATION
     Dosage: UNK
     Route: 048
     Dates: start: 200905
  11. OXYCODONE [Concomitant]
     Active Substance: OXYCODONE
     Indication: ANALGESIC THERAPY
     Dosage: 20 MILLIGRAM, ONCE A DAY (10 MG, BID)
     Route: 065
  12. OXYCODONE [Concomitant]
     Active Substance: OXYCODONE
     Indication: SOMNOLENCE
  13. FENTANYL. [Suspect]
     Active Substance: FENTANYL
     Indication: SUICIDE ATTEMPT
     Dosage: 100 MICROGRAM, UNK; IN TOTAL
     Route: 062
     Dates: start: 201407
  14. FENTANYL. [Suspect]
     Active Substance: FENTANYL
     Dosage: 100 MICROGRAM
     Route: 065
     Dates: start: 20071001

REACTIONS (5)
  - Somnolence [Recovering/Resolving]
  - Suicide attempt [Unknown]
  - Drug ineffective [Unknown]
  - Intentional overdose [Recovered/Resolved]
  - Intentional product misuse [Unknown]

NARRATIVE: CASE EVENT DATE: 201407
